FAERS Safety Report 5452728-2 (Version None)
Quarter: 2007Q3

REPORT INFORMATION
  Report Type: 
  Country: None (occurrence: None)
  Receive Date: 20070914
  Receipt Date: 20070912
  Transmission Date: 20080115
  Serious: Yes (Death, Other)
  Sender: FDA-Public Use
  Company Number: US-ASTRAZENECA-2007UW16050

PATIENT
  Age: 11105 Day
  Sex: Female

DRUGS (3)
  1. SEROQUEL [Suspect]
     Indication: SCHIZOPHRENIA
     Route: 048
     Dates: start: 19980101, end: 20020517
  2. ZYPREXA [Concomitant]
  3. RISPERDAL [Concomitant]

REACTIONS (3)
  - DEATH [None]
  - PANCREATITIS ACUTE [None]
  - TYPE 2 DIABETES MELLITUS [None]
